FAERS Safety Report 18579784 (Version 1)
Quarter: 2020Q4

REPORT INFORMATION
  Report Type: Spontaneous
  Country: JP (occurrence: JP)
  Receive Date: 20201204
  Receipt Date: 20201204
  Transmission Date: 20210114
  Serious: Yes (Other)
  Sender: FDA-Public Use
  Company Number: JP-PFIZER INC-2020477301

PATIENT
  Age: 53 Year
  Sex: Female

DRUGS (1)
  1. BESPONSA [Suspect]
     Active Substance: INOTUZUMAB OZOGAMICIN

REACTIONS (4)
  - White blood cell count decreased [Unknown]
  - Enterocolitis infectious [Unknown]
  - Febrile neutropenia [Unknown]
  - Sinusitis [Unknown]
